FAERS Safety Report 7623322-X (Version None)
Quarter: 2011Q3

REPORT INFORMATION
  Report Type: 
  Country: None (occurrence: None)
  Receive Date: 20110720
  Receipt Date: 20110715
  Transmission Date: 20111222
  Serious: No
  Sender: FDA-Public Use
  Company Number: US-B.I. PHARMACEUTICALS,INC./RIDGEFIELD-2011-BP-14789BP

PATIENT
  Age: 72 Year
  Sex: Female

DRUGS (16)
  1. NEURONTIN [Concomitant]
     Dosage: 600 MG
  2. VIT D [Concomitant]
     Dosage: 1000 NR
  3. VIT E [Concomitant]
     Dosage: 400 NR
  4. LUTEIN [Concomitant]
     Dosage: 40 NR
  5. BILBERRY [Concomitant]
     Dosage: 1000 NR
  6. FISH OIL [Concomitant]
     Dosage: 1200 NR
  7. PRADAXA [Suspect]
     Indication: ATRIAL FIBRILLATION
     Dosage: 300 MG
     Route: 048
     Dates: start: 20110301
  8. DIAZEPAM [Concomitant]
     Dosage: 5 MG
  9. CO-Q10 [Concomitant]
     Dosage: 600 NR
  10. VIT C [Concomitant]
     Dosage: 500 NR
  11. VALIUM [Concomitant]
     Indication: INSOMNIA
     Dosage: 5 MG
     Route: 048
  12. ABOUT EIGHT SUPPLEMENTS [Concomitant]
     Indication: ROUTINE HEALTH MAINTENANCE
     Route: 048
  13. SOTALOL HCL [Concomitant]
     Indication: ATRIAL FIBRILLATION
     Dosage: 240 MG
     Route: 048
  14. GABAPENTIN [Concomitant]
     Indication: NEUROPATHY PERIPHERAL
     Dosage: 600 MG
     Route: 048
  15. VITAMIN B-12 [Concomitant]
     Dosage: 5000 NR
  16. GINKO BILOBA [Concomitant]
     Dosage: 120 NR

REACTIONS (2)
  - DIARRHOEA [None]
  - HEART RATE IRREGULAR [None]
